FAERS Safety Report 12301604 (Version 1)
Quarter: 2016Q2

REPORT INFORMATION
  Report Type: Report from Study
  Country: US (occurrence: US)
  Receive Date: 20160425
  Receipt Date: 20160425
  Transmission Date: 20160815
  Serious: No
  Sender: FDA-Public Use
  Company Number: US-ALEXION-A201602860

PATIENT
  Sex: Female

DRUGS (1)
  1. STRENSIQ [Suspect]
     Active Substance: ASFOTASE ALFA
     Indication: PRODUCT USED FOR UNKNOWN INDICATION
     Route: 058

REACTIONS (5)
  - Condition aggravated [Unknown]
  - Fatigue [Unknown]
  - Neuralgia [Unknown]
  - Injection site inflammation [Unknown]
  - Injection site pain [Unknown]

NARRATIVE: CASE EVENT DATE: 201604
